FAERS Safety Report 16872564 (Version 1)
Quarter: 2019Q4

REPORT INFORMATION
  Report Type: Spontaneous
  Country: US (occurrence: US)
  Receive Date: 20191001
  Receipt Date: 20191001
  Transmission Date: 20200122
  Serious: No
  Sender: FDA-Public Use
  Company Number: US-CELGENEUS-USA-20190908379

PATIENT
  Age: 71 Year
  Sex: Male

DRUGS (1)
  1. REVLIMID [Suspect]
     Active Substance: LENALIDOMIDE
     Indication: PLASMA CELL MYELOMA
     Dosage: 5 MILLIGRAM
     Route: 048
     Dates: start: 20190912, end: 20190923

REACTIONS (4)
  - Wheezing [Unknown]
  - Rash pruritic [Unknown]
  - Ocular hyperaemia [Unknown]
  - Dysphagia [Unknown]

NARRATIVE: CASE EVENT DATE: 201909
